FAERS Safety Report 4724446-7 (Version None)
Quarter: 2005Q3

REPORT INFORMATION
  Report Type: 
  Country: None (occurrence: None)
  Receive Date: 20050722
  Receipt Date: 20050722
  Transmission Date: 20060218
  Serious: Yes (Death, Life-Threatening)
  Sender: FDA-Public Use
  Company Number: None

PATIENT
  Age: 79 Year
  Sex: Male
  Weight: 86.1834 kg

DRUGS (11)
  1. FENTANYL [Suspect]
     Indication: BACK PAIN
     Dosage: SEE IMAGE
     Dates: start: 20050331, end: 20050401
  2. FENTANYL [Suspect]
     Indication: OSTEOARTHRITIS
     Dosage: SEE IMAGE
     Dates: start: 20050331, end: 20050401
  3. FENTANYL [Suspect]
     Indication: BACK PAIN
     Dosage: SEE IMAGE
  4. FENTANYL [Suspect]
     Indication: OSTEOARTHRITIS
     Dosage: SEE IMAGE
  5. TYLENOL (CAPLET) [Concomitant]
  6. ASPIRIN [Concomitant]
  7. MULTIVITAMIN [Concomitant]
  8. MULTI-VITAMIN [Concomitant]
  9. ASCORBIC ACID [Concomitant]
  10. VITAMIN B COMPLEX CAP [Concomitant]
  11. FUNGOID TINCTURE (MICONAZOLE) [Concomitant]

REACTIONS (3)
  - CARDIOVASCULAR DISORDER [None]
  - HEAT EXPOSURE INJURY [None]
  - SOMNOLENCE [None]
